FAERS Safety Report 18190078 (Version 3)
Quarter: 2021Q1

REPORT INFORMATION
  Report Type: Spontaneous
  Country: US (occurrence: US)
  Receive Date: 20200825
  Receipt Date: 20210112
  Transmission Date: 20210419
  Serious: Yes (Other)
  Sender: FDA-Public Use
  Company Number: US-AUROBINDO-AUR-APL-2020-040413

PATIENT
  Age: 15 Year
  Sex: Male
  Weight: 74.38 kg

DRUGS (1)
  1. ESOMEPRAZOLE MAGNESIUM DELAYED?RELEASE CAPSULES USP 20 MG [Suspect]
     Active Substance: ESOMEPRAZOLE MAGNESIUM
     Indication: PRODUCT USED FOR UNKNOWN INDICATION
     Dosage: UNK
     Route: 065
     Dates: start: 20200811

REACTIONS (3)
  - Product tampering [Unknown]
  - Accidental poisoning [Unknown]
  - Product packaging issue [Unknown]

NARRATIVE: CASE EVENT DATE: 20200812
